FAERS Safety Report 9969447 (Version 2)
Quarter: 2014Q2

REPORT INFORMATION
  Report Type: Report from Study
  Country: SE (occurrence: SE)
  Receive Date: 20140306
  Receipt Date: 20140421
  Transmission Date: 20141212
  Serious: Yes (Other)
  Sender: FDA-Public Use
  Company Number: SE-AMGEN-SWESP2014015604

PATIENT
  Age: 65 Year
  Sex: Male

DRUGS (5)
  1. ETANERCEPT [Suspect]
     Indication: ANKYLOSING SPONDYLITIS
     Dosage: 50 MG, QWK
     Route: 065
     Dates: start: 20120130, end: 20130924
  2. OMEPRAZOL                          /00661201/ [Concomitant]
     Dosage: UNK
  3. EPHEDREX [Concomitant]
     Dosage: UNK
  4. OMEPRAZOL                          /00661201/ [Concomitant]
  5. ESIDREX [Concomitant]
     Dosage: 25 MG, 1X/DAY
     Dates: start: 2012

REACTIONS (1)
  - Brain oedema [Recovering/Resolving]
